FAERS Safety Report 5370517-4 (Version None)
Quarter: 2007Q2

REPORT INFORMATION
  Report Type: 
  Country: None (occurrence: None)
  Receive Date: 20070625
  Receipt Date: 20070625
  Transmission Date: 20071010
  Serious: Yes (Death, Life-Threatening, Hospitalization)
  Sender: FDA-Public Use
  Company Number: None

PATIENT
  Age: 43 Year
  Sex: Male
  Weight: 81.6475 kg

DRUGS (2)
  1. FENTANYL [Suspect]
     Indication: BACK PAIN
     Dosage: 100 MCG/HR EVERY 48 HOURS TRANSDERMAL
     Route: 062
     Dates: start: 20040106, end: 20051018
  2. FENTANYL [Suspect]
     Indication: INJURY
     Dosage: 100 MCG/HR EVERY 48 HOURS TRANSDERMAL
     Route: 062
     Dates: start: 20040106, end: 20051018

REACTIONS (1)
  - DEATH [None]
